FAERS Safety Report 7538085-6 (Version None)
Quarter: 2011Q2

REPORT INFORMATION
  Report Type: 
  Country: None (occurrence: None)
  Receive Date: 20110609
  Receipt Date: 20010302
  Transmission Date: 20111010
  Serious: Yes (Death)
  Sender: FDA-Public Use
  Company Number: PHBS2001JP02362

PATIENT
  Sex: Male
  Weight: 59 kg

DRUGS (4)
  1. SANDIMMUNE [Suspect]
     Indication: APLASTIC ANAEMIA
     Dosage: 200 MG, QD
     Route: 065
     Dates: start: 19970621, end: 19980107
  2. ANABOLIC STEROIDS [Concomitant]
     Dates: start: 20000208
  3. NEUPOGEN [Concomitant]
     Dates: start: 20000208
  4. ADRENAL CORTEX HORMON [Concomitant]
     Dates: start: 20000208

REACTIONS (1)
  - DEATH [None]
